FAERS Safety Report 4373703-5 (Version None)
Quarter: 2004Q1

REPORT INFORMATION
  Report Type: 
  Country: None (occurrence: None)
  Receive Date: 20040305
  Receipt Date: 20040106
  Transmission Date: 20041129
  Serious: Yes (Other)
  Sender: FDA-Public Use
  Company Number: 2004UW00217

PATIENT
  Age: 79 Year
  Sex: Female

DRUGS (10)
  1. CRESTOR [Suspect]
     Dosage: 20 MG PO
     Route: 048
     Dates: start: 20040101
  2. SPIRONOLACTONE [Concomitant]
  3. SYNTHROID [Concomitant]
  4. LISINOPRIL [Concomitant]
  5. ISOSORBIDE [Concomitant]
  6. IODINE [Concomitant]
  7. ACTONEL [Concomitant]
  8. ASPIRIN [Concomitant]
  9. NEXIUM [Concomitant]
  10. XENICAL [Concomitant]

REACTIONS (1)
  - BURNING SENSATION [None]
